FAERS Safety Report 5487686-8 (Version None)
Quarter: 2007Q4

REPORT INFORMATION
  Report Type: 
  Country: None (occurrence: None)
  Receive Date: 20071017
  Receipt Date: 20071010
  Transmission Date: 20080405
  Serious: Yes (Other)
  Sender: FDA-Public Use
  Company Number: PHBS2007US16875

PATIENT
  Age: 8 Year
  Sex: Male

DRUGS (12)
  1. CYCLOSPORINE [Suspect]
     Indication: STEM CELL TRANSPLANT
     Dosage: 5 MG/KG/D
     Route: 065
  2. PREDNISONE [Concomitant]
     Indication: STEM CELL TRANSPLANT
     Route: 065
  3. AMPHOTERICIN B [Concomitant]
  4. AMLODIPINE [Concomitant]
  5. CLONIDINE [Concomitant]
  6. POTASSIUM CHLORIDE [Concomitant]
  7. MAGNESIUM SULFATE [Concomitant]
  8. PHOSPHORUS [Concomitant]
  9. ALUMINUM HYDROXIDE GEL [Concomitant]
  10. MAGNESIUM HYDROXIDE W/SIMETHICONE [Concomitant]
  11. PENTAMIDINE ISETHIONATE [Concomitant]
  12. METHOTREXATE [Concomitant]
     Indication: STEM CELL TRANSPLANT

REACTIONS (9)
  - ACUTE GRAFT VERSUS HOST DISEASE IN LIVER [None]
  - BUCCAL POLYP [None]
  - CHRONIC GRAFT VERSUS HOST DISEASE [None]
  - GLOSSODYNIA [None]
  - LEUKAEMIA RECURRENT [None]
  - MOUTH ULCERATION [None]
  - POLYPECTOMY [None]
  - STEM CELL TRANSPLANT [None]
  - TONGUE DISORDER [None]
